FAERS Safety Report 24702855 (Version 1)
Quarter: 2024Q4

REPORT INFORMATION
  Report Type: Spontaneous
  Country: US (occurrence: US)
  Receive Date: 20241205
  Receipt Date: 20241205
  Transmission Date: 20250114
  Serious: No
  Sender: JOHNSON AND JOHNSON
  Company Number: US-JNJFOC-20240980459

PATIENT
  Age: 76 Year
  Sex: Female

DRUGS (7)
  1. TYLENOL EXTRA STRENGTH CAPLET [Suspect]
     Active Substance: ACETAMINOPHEN
     Indication: Arthritis
     Dosage: 2 DOSAGE FORM, ONCE A DAY
     Dates: start: 202407
  2. TYLENOL EXTRA STRENGTH CAPLET [Suspect]
     Active Substance: ACETAMINOPHEN
     Dosage: SOMETIMES THREE TIMES A DAY
     Route: 048
     Dates: start: 202407
  3. DIOVAN [Concomitant]
     Active Substance: VALSARTAN
     Indication: Blood pressure abnormal
     Dosage: UNK
     Route: 065
  4. VITAMIN D3 [Concomitant]
     Active Substance: CHOLECALCIFEROL
     Indication: Blood test abnormal
     Dosage: UNK
     Route: 065
  5. SERTRALINE [Concomitant]
     Active Substance: SERTRALINE HYDROCHLORIDE
     Indication: Depression
     Dosage: 75 MILLIGRAM, ONCE A DAY
     Route: 065
  6. POIZE [Concomitant]
     Indication: Product used for unknown indication
     Dosage: UNK
     Route: 065
  7. PROTONIX [Concomitant]
     Active Substance: PANTOPRAZOLE SODIUM
     Indication: Gastroenteritis
     Dosage: 20 MILLIGRAM
     Route: 065

REACTIONS (3)
  - Nausea [Recovering/Resolving]
  - Choking sensation [Recovering/Resolving]
  - Vomiting [Unknown]

NARRATIVE: CASE EVENT DATE: 20240701
